FAERS Safety Report 7460338-0 (Version None)
Quarter: 2011Q2

REPORT INFORMATION
  Report Type: 
  Country: None (occurrence: None)
  Receive Date: 20110505
  Receipt Date: 20101130
  Transmission Date: 20111010
  Serious: Yes (Hospitalization)
  Sender: FDA-Public Use
  Company Number: A0898279A

PATIENT
  Age: 55 Year
  Sex: Female

DRUGS (1)
  1. ROSIGLITAZONE MALEATE [Suspect]
     Indication: DIABETES MELLITUS
     Route: 048

REACTIONS (8)
  - PAIN IN EXTREMITY [None]
  - STENT PLACEMENT [None]
  - CEREBROVASCULAR ACCIDENT [None]
  - HYPERTENSION [None]
  - CARDIAC OPERATION [None]
  - MYOCARDIAL INFARCTION [None]
  - HEART RATE INCREASED [None]
  - CATHETERISATION CARDIAC [None]
